FAERS Safety Report 10381941 (Version 1)
Quarter: 2014Q1

REPORT INFORMATION
  Report Type: Spontaneous
  Country: US (occurrence: None)
  Receive Date: 20140306
  Receipt Date: 20140306
  Transmission Date: 20141002
  Serious: Yes (Disabling, Other)
  Sender: FDA-Public Use
  Company Number: 163-21880-13090577

PATIENT
  Age: 61 Year
  Sex: Male

DRUGS (7)
  1. REVLIMID [Suspect]
     Indication: PLASMA CELL MYELOMA
     Route: 048
     Dates: start: 20130328, end: 20130829
  2. VELCADE (BORTEZOMIB) [Concomitant]
  3. ACYCLOVIR (ACICLOVIR) (ACICLOVIR) [Concomitant]
  4. PANTOPRAZOLE [Concomitant]
  5. LEVOTHROID (LEVOTHYROXINE SODIUM) [Concomitant]
  6. ONDANSETRON [Concomitant]
  7. PROTONIX [Concomitant]

REACTIONS (3)
  - Gastrooesophageal reflux disease [None]
  - Vision blurred [None]
  - Muscle spasms [None]
